FAERS Safety Report 8866020 (Version 1)
Quarter: 2012Q4

REPORT INFORMATION
  Report Type: Report from Study
  Country: US (occurrence: US)
  Receive Date: 20121025
  Receipt Date: 20121025
  Transmission Date: 20130627
  Serious: No
  Sender: FDA-Public Use
  Company Number: US-ABBOTT-11P-163-0878207-00

PATIENT
  Sex: Female
  Weight: 66.28 kg

DRUGS (3)
  1. LUPRON DEPOT 3.75 MG [Suspect]
     Indication: ENDOMETRIOSIS
     Route: 030
     Dates: start: 20111026
  2. SEASONALE [Concomitant]
     Indication: PRODUCT USED FOR UNKNOWN INDICATION
  3. IBUPROFEN [Concomitant]
     Indication: PRODUCT USED FOR UNKNOWN INDICATION

REACTIONS (15)
  - Hot flush [Unknown]
  - Vulvovaginal dryness [Unknown]
  - Feeling jittery [Unknown]
  - Nervousness [Unknown]
  - Nausea [Unknown]
  - Dizziness [Unknown]
  - Dizziness [Unknown]
  - Chest pain [Unknown]
  - Dyspnoea [Unknown]
  - Hypertension [Unknown]
  - Chest discomfort [Unknown]
  - Respiratory tract infection [Unknown]
  - Dizziness [Unknown]
  - Dizziness [Unknown]
  - Adverse drug reaction [Unknown]
